FAERS Safety Report 13380196 (Version 1)
Quarter: 2017Q1

REPORT INFORMATION
  Report Type: Spontaneous
  Country: PL (occurrence: PL)
  Receive Date: 20170328
  Receipt Date: 20170328
  Transmission Date: 20170429
  Serious: Yes (Other)
  Sender: FDA-Public Use
  Company Number: PL-ASTRAZENECA-2017SE30066

PATIENT
  Age: 64 Year
  Sex: Female
  Weight: 103 kg

DRUGS (9)
  1. RAMIPRIL. [Concomitant]
     Active Substance: RAMIPRIL
  2. FORXIGA [Suspect]
     Active Substance: DAPAGLIFLOZIN
     Route: 048
     Dates: start: 201511
  3. METFORMIN [Concomitant]
     Active Substance: METFORMIN HYDROCHLORIDE
  4. ATORVASTATIN [Concomitant]
     Active Substance: ATORVASTATIN
  5. INSULIN [Concomitant]
     Active Substance: INSULIN NOS
     Dosage: 96-100 U PER DAY IN 4 INJECTIONS
  6. INDAPAMIDE. [Concomitant]
     Active Substance: INDAPAMIDE
  7. VICTOZA [Concomitant]
     Active Substance: LIRAGLUTIDE
  8. FORXIGA [Suspect]
     Active Substance: DAPAGLIFLOZIN
     Route: 048
     Dates: start: 201311
  9. ASA [Concomitant]
     Active Substance: ASPIRIN

REACTIONS (5)
  - Foot fracture [Unknown]
  - Hypoglycaemia [Unknown]
  - Myocardial infarction [Unknown]
  - Diabetes mellitus inadequate control [Unknown]
  - Vulvovaginal pruritus [Recovered/Resolved]

NARRATIVE: CASE EVENT DATE: 201402
